FAERS Safety Report 15786741 (Version 1)
Quarter: 2018Q4

REPORT INFORMATION
  Report Type: Spontaneous
  Country: US (occurrence: US)
  Receive Date: 20181212
  Receipt Date: 20181212
  Transmission Date: 20190205
  Serious: Yes (Disabling, Other)
  Sender: FDA-Public Use
  Company Number: None

PATIENT
  Age: 63 Year
  Sex: Female
  Weight: 64.86 kg

DRUGS (28)
  1. TUMS [Concomitant]
     Active Substance: CALCIUM CARBONATE
  2. CYCLOBENZOPRINE [Concomitant]
     Active Substance: CYCLOBENZAPRINE
  3. BABY ASPIRIN [Concomitant]
     Active Substance: ASPIRIN
  4. MULTI VIT-SR [Concomitant]
  5. BUPROPION XL [Concomitant]
     Active Substance: BUPROPION
  6. FISH OIL [Concomitant]
     Active Substance: FISH OIL
  7. VIT D3 1000 IU [Concomitant]
  8. LEUCOVORIN CALCIUM. [Concomitant]
     Active Substance: LEUCOVORIN CALCIUM
  9. BUTALBITAL [Concomitant]
     Active Substance: BUTALBITAL
  10. VITAMIN D3 [Concomitant]
     Active Substance: CHOLECALCIFEROL
  11. FAMOVAIR [Concomitant]
  12. PREDNISONE. [Concomitant]
     Active Substance: PREDNISONE
  13. REMICADE [Concomitant]
     Active Substance: INFLIXIMAB
  14. PROAIR INHALER [Concomitant]
     Active Substance: ALBUTEROL SULFATE
  15. B6 [Concomitant]
     Active Substance: PYRIDOXINE HYDROCHLORIDE
  16. METHOTREXATE. [Concomitant]
     Active Substance: METHOTREXATE
  17. ATORVASTATIN [Concomitant]
     Active Substance: ATORVASTATIN
  18. ENBREL [Suspect]
     Active Substance: ETANERCEPT
     Indication: RHEUMATOID ARTHRITIS
     Dosage: ?          OTHER STRENGTH:1 SHOT;QUANTITY:1 SHOT, INJECT PEN;OTHER ROUTE:INJECTION PEN?
     Dates: start: 201706, end: 20180514
  19. SHINGRIX SHOT [Concomitant]
  20. SUMATRIPTAN. [Concomitant]
     Active Substance: SUMATRIPTAN
  21. FLONASE NASIL [Concomitant]
  22. ISONIAZID. [Concomitant]
     Active Substance: ISONIAZID
  23. MULTI VIT [Concomitant]
  24. FOLIC ACID. [Concomitant]
     Active Substance: FOLIC ACID
  25. VITAMIN C [Concomitant]
     Active Substance: ASCORBIC ACID
  26. AZATHIOPRINE. [Concomitant]
     Active Substance: AZATHIOPRINE
  27. DICYCLOMINE [Concomitant]
     Active Substance: DICYCLOMINE HYDROCHLORIDE
  28. VITAMIN C [Concomitant]
     Active Substance: ASCORBIC ACID

REACTIONS (4)
  - Eye disorder [None]
  - Condition aggravated [None]
  - Scleromalacia [None]
  - Tuberculosis [None]

NARRATIVE: CASE EVENT DATE: 20180514
